FAERS Safety Report 9841342 (Version 2)
Quarter: 2014Q1

REPORT INFORMATION
  Report Type: Spontaneous
  Country: FR (occurrence: FR)
  Receive Date: 20140124
  Receipt Date: 20140124
  Transmission Date: 20141002
  Serious: Yes (Hospitalization)
  Sender: FDA-Public Use
  Company Number: FR-PFIZER INC-2012200328

PATIENT
  Age: 79 Year
  Sex: Male

DRUGS (3)
  1. FRAGMINE [Suspect]
     Dosage: UNK
     Route: 058
     Dates: start: 20120224, end: 20120304
  2. HEPARIN SODIUM [Suspect]
     Dosage: UNK
     Route: 042
     Dates: start: 20120306, end: 20120313
  3. CALCIPARIN [Suspect]
     Dosage: UNK
     Route: 058
     Dates: start: 20120304, end: 20120304

REACTIONS (1)
  - Heparin-induced thrombocytopenia [Recovered/Resolved]
